FAERS Safety Report 12679464 (Version 1)
Quarter: 2016Q3

REPORT INFORMATION
  Report Type: Spontaneous
  Country: US (occurrence: None)
  Receive Date: 20160823
  Receipt Date: 20160823
  Transmission Date: 20161109
  Serious: Yes (Disabling)
  Sender: FDA-Public Use
  Company Number: None

PATIENT
  Age: 50 Year
  Sex: Female
  Weight: 58.97 kg

DRUGS (7)
  1. MAGNESIUM MALATE [Concomitant]
  2. MINERAL 650 [Concomitant]
  3. ZYRTEK (CETIRIZINE HYDROCHLORIDE) [Concomitant]
  4. MIRENA [Suspect]
     Active Substance: LEVONORGESTREL
  5. FOLATE (AS METAFOLIN, L-5-HTHF) [Concomitant]
  6. 5-HTP (5-HYDROXYTRYPTOPHAN) [Concomitant]
  7. METHYL B-12 (METHYCOBALAMIN) [Concomitant]

REACTIONS (4)
  - Anxiety [None]
  - Depression [None]
  - Amenorrhoea [None]
  - Loss of employment [None]

NARRATIVE: CASE EVENT DATE: 20140201
